APPROVED DRUG PRODUCT: HALOBETASOL PROPIONATE
Active Ingredient: HALOBETASOL PROPIONATE
Strength: 0.05%
Dosage Form/Route: OINTMENT;TOPICAL
Application: A213560 | Product #001 | TE Code: AB
Applicant: QUAGEN PHARMACEUTICALS LLC
Approved: Oct 6, 2020 | RLD: No | RS: No | Type: RX